FAERS Safety Report 5943806-X (Version None)
Quarter: 2008Q4

REPORT INFORMATION
  Report Type: 
  Country: None (occurrence: None)
  Receive Date: 20081106
  Receipt Date: 20080904
  Transmission Date: 20090506
  Serious: No
  Sender: FDA-Public Use
  Company Number: US-BAYER-200832880NA

PATIENT
  Age: 59 Year
  Weight: 93 kg

DRUGS (1)
  1. MAGNEVIST [Suspect]
     Indication: NUCLEAR MAGNETIC RESONANCE IMAGING
     Dosage: TOTAL DAILY DOSE: 20 ML  UNIT DOSE: 100 ML
     Route: 042
     Dates: start: 20080902, end: 20080902

REACTIONS (1)
  - URTICARIA [None]
